FAERS Safety Report 9803750 (Version 1)
Quarter: 2014Q1

REPORT INFORMATION
  Report Type: Spontaneous
  Country: US (occurrence: US)
  Receive Date: 20140108
  Receipt Date: 20140108
  Transmission Date: 20141002
  Serious: No
  Sender: FDA-Public Use
  Company Number: US-GLAXOSMITHKLINE-A1032224A

PATIENT
  Age: 68 Year
  Sex: Female

DRUGS (2)
  1. LOVAZA [Suspect]
     Indication: BLOOD CHOLESTEROL INCREASED
     Dosage: 1CAP THREE TIMES PER DAY
     Route: 048
     Dates: start: 2008
  2. UNSPECIFIED MEDICATION [Concomitant]

REACTIONS (2)
  - Eructation [Recovered/Resolved]
  - Product quality issue [Unknown]
